FAERS Safety Report 8823876 (Version 1)
Quarter: 2012Q4

REPORT INFORMATION
  Report Type: 
  Country: US (occurrence: US)
  Receive Date: 20121003
  Receipt Date: 20121003
  Transmission Date: 20130627
  Serious: Yes (Hospitalization, Other)
  Sender: FDA-Public Use
  Company Number: US-MERCK-1210USA000904

PATIENT
  Age: 76 Year
  Sex: Female

DRUGS (2)
  1. JANUVIA [Suspect]
     Dosage: 50 mg, qd
     Route: 048
  2. PRINIVIL [Suspect]
     Dosage: 2.5 mg, qd
     Route: 048

REACTIONS (1)
  - Pancreatitis acute [Unknown]
